FAERS Safety Report 15233936 (Version 2)
Quarter: 2018Q3

REPORT INFORMATION
  Report Type: Spontaneous
  Country: JP (occurrence: JP)
  Receive Date: 20180802
  Receipt Date: 20180918
  Transmission Date: 20181010
  Serious: Yes (Hospitalization, Disabling)
  Sender: FDA-Public Use
  Company Number: PHJP2018JP014671

PATIENT
  Age: 65 Year
  Sex: Male

DRUGS (6)
  1. CELLCEPT [Concomitant]
     Active Substance: MYCOPHENOLATE MOFETIL\MYCOPHENOLATE MOFETIL HYDROCHLORIDE
     Indication: PRODUCT USED FOR UNKNOWN INDICATION
     Dosage: UNK
     Route: 065
  2. PREDNISOLONE. [Concomitant]
     Active Substance: PREDNISOLONE
     Indication: PRODUCT USED FOR UNKNOWN INDICATION
     Dosage: UNK
     Route: 065
  3. NEORAL [Suspect]
     Active Substance: CYCLOSPORINE
     Indication: LIVER TRANSPLANT
     Dosage: 125 MG, UNK
     Route: 048
  4. NEORAL [Suspect]
     Active Substance: CYCLOSPORINE
     Indication: PROPHYLAXIS AGAINST TRANSPLANT REJECTION
     Dosage: 100 MG, QD
     Route: 048
  5. CERTICAN [Suspect]
     Active Substance: EVEROLIMUS
     Indication: LIVER TRANSPLANT
     Dosage: 0.5 MG, UNK
     Route: 048
     Dates: start: 20180421
  6. CERTICAN [Suspect]
     Active Substance: EVEROLIMUS
     Indication: PROPHYLAXIS AGAINST TRANSPLANT REJECTION
     Dosage: 1.5 MG, QD
     Route: 048

REACTIONS (10)
  - Gastrointestinal haemorrhage [Recovered/Resolved]
  - Prinzmetal angina [Recovering/Resolving]
  - Infection [Recovered/Resolved]
  - Anuria [Recovered/Resolved]
  - Protein urine [Recovering/Resolving]
  - Supraventricular tachycardia [Recovering/Resolving]
  - Portal hypertensive gastropathy [Recovered/Resolved]
  - Pulmonary oedema [Recovered/Resolved]
  - Renal disorder [Recovered/Resolved]
  - Cardiac failure congestive [Recovered/Resolved]
